FAERS Safety Report 6343618-1 (Version None)
Quarter: 2009Q3

REPORT INFORMATION
  Report Type: 
  Country: None (occurrence: None)
  Receive Date: 20090908
  Receipt Date: 20090826
  Transmission Date: 20100115
  Serious: Yes (Hospitalization)
  Sender: FDA-Public Use
  Company Number: FR-AVENTIS-200913224FR

PATIENT
  Age: 75 Year
  Sex: Male

DRUGS (11)
  1. LASILIX                            /00032601/ [Suspect]
     Dosage: DOSE: 500-250
     Route: 048
     Dates: start: 20060101
  2. TRIATEC                            /00885601/ [Suspect]
     Route: 048
     Dates: start: 20060101
  3. LANTUS [Suspect]
     Indication: TYPE 2 DIABETES MELLITUS
     Route: 058
  4. ROVAMYCINE                         /00074401/ [Suspect]
     Indication: PNEUMONIA
     Route: 048
     Dates: start: 20090601, end: 20090625
  5. PREVISCAN                          /00789001/ [Suspect]
     Indication: THROMBOSIS PROPHYLAXIS
     Route: 048
     Dates: start: 20060101
  6. CARDENSIEL [Suspect]
     Route: 048
     Dates: start: 20060101
  7. AMIODARONE [Suspect]
     Indication: ATRIAL FIBRILLATION
     Route: 048
     Dates: start: 20060101
  8. LEVOTHYROXINE SODIUM [Suspect]
     Indication: HYPOTHYROIDISM
     Route: 048
     Dates: start: 20060101
  9. OMEPRAZOLE [Suspect]
     Indication: DRUG USE FOR UNKNOWN INDICATION
     Route: 048
     Dates: start: 20060101
  10. METFORMIN HCL [Suspect]
     Indication: DIABETES MELLITUS
     Route: 048
     Dates: start: 20060101
  11. ALDACTONE [Concomitant]
     Indication: DRUG USE FOR UNKNOWN INDICATION
     Route: 048

REACTIONS (2)
  - VASCULAR PURPURA [None]
  - VASCULITIS [None]
